FAERS Safety Report 15160737 (Version 1)
Quarter: 2018Q3

REPORT INFORMATION
  Report Type: Spontaneous
  Country: US (occurrence: US)
  Receive Date: 20180718
  Receipt Date: 20180718
  Transmission Date: 20181010
  Serious: Yes (Other)
  Sender: FDA-Public Use
  Company Number: US-UNITED THERAPEUTICS-UNT-2018-007890

PATIENT
  Sex: Male
  Weight: 117.91 kg

DRUGS (5)
  1. EPOPROSTENOL. [Concomitant]
     Active Substance: EPOPROSTENOL
     Indication: PRODUCT USED FOR UNKNOWN INDICATION
     Route: 065
  2. ADCIRCA [Concomitant]
     Active Substance: TADALAFIL
     Indication: PRODUCT USED FOR UNKNOWN INDICATION
     Route: 065
  3. LETAIRIS [Concomitant]
     Active Substance: AMBRISENTAN
     Indication: PRODUCT USED FOR UNKNOWN INDICATION
     Route: 065
  4. REMODULIN [Suspect]
     Active Substance: TREPROSTINIL
     Indication: PULMONARY ARTERIAL HYPERTENSION
     Dosage: 0.043 ?G/KG, CONTINUING
     Route: 041
     Dates: start: 20160620
  5. REMODULIN [Suspect]
     Active Substance: TREPROSTINIL
     Dosage: UNK
     Route: 041

REACTIONS (7)
  - Gastrointestinal disorder [Unknown]
  - Device dislocation [Recovering/Resolving]
  - Neuralgia [Unknown]
  - Loss of personal independence in daily activities [Unknown]
  - Cardiac infection [Unknown]
  - Pyrexia [Unknown]
  - Device related sepsis [Recovering/Resolving]

NARRATIVE: CASE EVENT DATE: 2016
